FAERS Safety Report 16610751 (Version 1)
Quarter: 2019Q3

REPORT INFORMATION
  Report Type: Spontaneous
  Country: US (occurrence: US)
  Receive Date: 20190722
  Receipt Date: 20190722
  Transmission Date: 20191004
  Serious: No
  Sender: FDA-Public Use
  Company Number: PHEH2019US030034

PATIENT
  Sex: Female

DRUGS (2)
  1. KISQALI [Suspect]
     Active Substance: RIBOCICLIB
     Indication: BREAST CANCER METASTATIC
     Dosage: 600 MG, QD
     Route: 048
     Dates: start: 20190704, end: 20190716
  2. KISQALI [Suspect]
     Active Substance: RIBOCICLIB
     Dosage: MORNING, NOON, AND NIGHT
     Route: 048
     Dates: start: 20190716, end: 20190717

REACTIONS (4)
  - Fatigue [Unknown]
  - Vomiting [Unknown]
  - Inappropriate schedule of product administration [Unknown]
  - Dizziness [Unknown]

NARRATIVE: CASE EVENT DATE: 20190716
